FAERS Safety Report 4722913-3 (Version None)
Quarter: 2005Q3

REPORT INFORMATION
  Report Type: 
  Country: None (occurrence: None)
  Receive Date: 20050722
  Receipt Date: 20041007
  Transmission Date: 20060218
  Serious: Yes (Hospitalization, Other)
  Sender: FDA-Public Use
  Company Number: ZA-ABBOTT-04P-143-0277006-00

PATIENT
  Sex: Male

DRUGS (4)
  1. CLARITHROMYCIN [Suspect]
     Indication: PYREXIA
     Dates: start: 20020522
  2. CLARITHROMYCIN [Suspect]
     Indication: INFECTION
     Dates: start: 20010801
  3. CLARITHROMYCIN [Suspect]
     Dates: start: 20050522
  4. CLARITHROMYCIN [Suspect]

REACTIONS (6)
  - AGRANULOCYTOSIS [None]
  - BACTERIAL INFECTION [None]
  - CONFUSIONAL STATE [None]
  - NEUTROPENIA [None]
  - VOMITING [None]
  - WHITE BLOOD CELL COUNT DECREASED [None]
